FAERS Safety Report 14022279 (Version 1)
Quarter: 2017Q3

REPORT INFORMATION
  Report Type: Spontaneous
  Country: GB (occurrence: GB)
  Receive Date: 20170928
  Receipt Date: 20170928
  Transmission Date: 20171128
  Serious: Yes (Other)
  Sender: FDA-Public Use
  Company Number: GB-ALLERGAN-1755284US

PATIENT
  Age: 43 Year
  Sex: Male

DRUGS (3)
  1. TRIPTORELIN PAMOATE - BP [Suspect]
     Active Substance: TRIPTORELIN PAMOATE
     Indication: OFF LABEL USE
  2. TRIPTORELIN PAMOATE - BP [Suspect]
     Active Substance: TRIPTORELIN PAMOATE
     Indication: TRANSGENDER HORMONAL THERAPY
     Dosage: UNK
  3. ESTRADIOL VALERATE. [Suspect]
     Active Substance: ESTRADIOL VALERATE
     Indication: TRANSGENDER HORMONAL THERAPY
     Dosage: UNK

REACTIONS (5)
  - Gastrooesophageal reflux disease [Unknown]
  - Off label use [Unknown]
  - Scleroderma [Unknown]
  - Pulmonary fibrosis [Unknown]
  - Myositis [Unknown]
